FAERS Safety Report 17960635 (Version 6)
Quarter: 2020Q3

REPORT INFORMATION
  Report Type: Report from Study
  Country: BE (occurrence: BE)
  Receive Date: 20200630
  Receipt Date: 20200819
  Transmission Date: 20201103
  Serious: Yes (Hospitalization)
  Sender: FDA-Public Use
  Company Number: NVSC2020BE145696

PATIENT
  Age: 57 Year
  Sex: Female
  Weight: 43 kg

DRUGS (13)
  1. FOLAVIT [Concomitant]
     Active Substance: FOLIC ACID
     Indication: VITAMIN SUPPLEMENTATION
     Dosage: UNK
     Route: 065
     Dates: start: 20200101
  2. OXYNORM [Concomitant]
     Active Substance: OXYCODONE HYDROCHLORIDE
     Indication: BACK PAIN
     Dosage: UNK
     Route: 065
     Dates: start: 20200101
  3. PREGABALINE [Concomitant]
     Active Substance: PREGABALIN
     Indication: PROPHYLAXIS
     Dosage: UNK
     Route: 065
     Dates: start: 20200501
  4. AUGMENTIN [Concomitant]
     Active Substance: AMOXICILLIN\CLAVULANATE POTASSIUM
     Indication: PYREXIA
     Dosage: UNK
     Route: 065
     Dates: start: 20200526, end: 20200530
  5. LITICAN [Concomitant]
     Active Substance: ALIZAPRIDE HYDROCHLORIDE
     Indication: PROPHYLAXIS
     Dosage: UNK
     Route: 065
     Dates: start: 20200101
  6. FENTANYL. [Concomitant]
     Active Substance: FENTANYL
     Indication: BACK PAIN
     Dosage: UNK
     Route: 065
     Dates: start: 20200501
  7. CLOPIDOGREL [Concomitant]
     Active Substance: CLOPIDOGREL BISULFATE
     Indication: PROPHYLAXIS
     Dosage: UNK
     Route: 065
     Dates: start: 20070101
  8. LYRICA [Concomitant]
     Active Substance: PREGABALIN
     Indication: BACK PAIN
     Dosage: UNK
     Route: 065
     Dates: start: 20200101
  9. PARACETAMOL [Concomitant]
     Active Substance: ACETAMINOPHEN
     Indication: BACK PAIN
     Dosage: UNK
     Route: 065
     Dates: start: 20200101
  10. TNO155 [Suspect]
     Active Substance: TNO-155 MONOSUCCINATE HEMIHYDRATE
     Indication: NEOPLASM
     Dosage: 60 MG, QD (2 WEEKS ON, 1 WEEK OFF)
     Route: 048
     Dates: start: 20200514, end: 20200527
  11. TILDIEM [Concomitant]
     Active Substance: DILTIAZEM HYDROCHLORIDE
     Indication: SINUS TACHYCARDIA
     Dosage: UNK
     Route: 065
     Dates: start: 20120101
  12. RIBOCICLIB. [Suspect]
     Active Substance: RIBOCICLIB
     Indication: NEOPLASM
     Dosage: 200 MG, QD
     Route: 048
     Dates: start: 20200514, end: 20200527
  13. MOVICOL [Concomitant]
     Active Substance: POLYETHYLENE GLYCOL 3350\POTASSIUM CHLORIDE\SODIUM BICARBONATE\SODIUM CHLORIDE
     Indication: PROPHYLAXIS
     Dosage: UNK
     Route: 065
     Dates: start: 20200101

REACTIONS (1)
  - Pulmonary oedema [Recovered/Resolved]

NARRATIVE: CASE EVENT DATE: 20200525
